FAERS Safety Report 7983460-9 (Version None)
Quarter: 2011Q4

REPORT INFORMATION
  Report Type: 
  Country: None (occurrence: None)
  Receive Date: 20111215
  Receipt Date: 20111206
  Transmission Date: 20120403
  Serious: Yes (Hospitalization, Other)
  Sender: FDA-Public Use
  Company Number: US-B.I. PHARMACEUTICALS,INC./RIDGEFIELD-2011-BP-27282BP

PATIENT
  Sex: Male
  Weight: 63.9 kg

DRUGS (5)
  1. TIOPRONIN [Suspect]
     Indication: CHRONIC OBSTRUCTIVE PULMONARY DISEASE
     Dosage: 2.5 MCG
     Dates: start: 20101108, end: 20111201
  2. ALBUTEROL [Suspect]
     Indication: CHRONIC OBSTRUCTIVE PULMONARY DISEASE
     Dosage: 12.5 MG
     Route: 055
     Dates: start: 20111114, end: 20111130
  3. PRAVASTATIN [Concomitant]
     Indication: DYSLIPIDAEMIA
     Dosage: 20 MG
     Route: 048
     Dates: start: 20111115, end: 20111129
  4. AXYRON [Concomitant]
     Indication: PROPHYLAXIS
     Route: 055
     Dates: start: 20111128
  5. ASPIRIN [Concomitant]
     Indication: PROPHYLAXIS
     Dosage: 81 MG
     Route: 048
     Dates: start: 20091001, end: 20111128

REACTIONS (4)
  - TACHYCARDIA [None]
  - PNEUMONIA [None]
  - ACUTE MYOCARDIAL INFARCTION [None]
  - TROPONIN I INCREASED [None]
